FAERS Safety Report 9751481 (Version 1)
Quarter: 2013Q4

REPORT INFORMATION
  Report Type: Spontaneous
  Country: US (occurrence: US)
  Receive Date: 20131212
  Receipt Date: 20131212
  Transmission Date: 20140711
  Serious: No
  Sender: FDA-Public Use
  Company Number: US-PURDUE-USA-2013-0106969

PATIENT
  Sex: Female

DRUGS (6)
  1. DILAUDID TABLET [Suspect]
     Indication: NAUSEA
     Dosage: 0.5-0.7MG, Q3H
     Route: 042
     Dates: start: 201201
  2. DILAUDID TABLET [Suspect]
     Indication: VOMITING
  3. DILAUDID TABLET [Suspect]
     Indication: PAIN
  4. PERCOCET                           /00867901/ [Concomitant]
     Indication: NAUSEA
     Dosage: 5/325MG
     Route: 048
     Dates: start: 201201
  5. PERCOCET                           /00867901/ [Concomitant]
     Indication: VOMITING
  6. PERCOCET                           /00867901/ [Concomitant]
     Indication: PAIN

REACTIONS (1)
  - Therapeutic response unexpected [Unknown]
